FAERS Safety Report 23735006 (Version 1)
Quarter: 2024Q2

REPORT INFORMATION
  Report Type: Other
  Country: VN (occurrence: None)
  Receive Date: 20240412
  Receipt Date: 20240412
  Transmission Date: 20240716
  Serious: Yes (Other)
  Sender: FDA-Public Use
  Company Number: VN-ROCHE-3543579

PATIENT

DRUGS (1)
  1. OSELTAMIVIR [Suspect]
     Active Substance: OSELTAMIVIR
     Indication: Influenza
     Route: 065

REACTIONS (6)
  - Pneumonia [Unknown]
  - Pneumonitis [Unknown]
  - Bronchitis [Unknown]
  - Otitis media [Unknown]
  - Diarrhoea [Unknown]
  - Sinusitis [Unknown]
